FAERS Safety Report 11028989 (Version 1)
Quarter: 2015Q2

REPORT INFORMATION
  Report Type: Spontaneous
  Country: GB (occurrence: GB)
  Receive Date: 20150414
  Receipt Date: 20150414
  Transmission Date: 20150821
  Serious: Yes (Life-Threatening)
  Sender: FDA-Public Use
  Company Number: PHHY2015GB040361

PATIENT
  Age: 34 Year
  Sex: Male
  Weight: 79.37 kg

DRUGS (2)
  1. MIRTAZAPINE. [Concomitant]
     Active Substance: MIRTAZAPINE
     Indication: PRODUCT USED FOR UNKNOWN INDICATION
     Route: 065
  2. LEVETIRACETAM. [Suspect]
     Active Substance: LEVETIRACETAM
     Indication: TEMPORAL LOBE EPILEPSY
     Dosage: 500 MG, UNK
     Route: 048
     Dates: start: 20150220, end: 20150325

REACTIONS (9)
  - Depression [Not Recovered/Not Resolved]
  - Alopecia [Unknown]
  - Anhedonia [Recovering/Resolving]
  - Rash [Not Recovered/Not Resolved]
  - Epilepsy [Recovering/Resolving]
  - Suicidal ideation [Recovering/Resolving]
  - Drug dispensing error [Unknown]
  - Decreased appetite [Recovering/Resolving]
  - Product substitution issue [Unknown]

NARRATIVE: CASE EVENT DATE: 20150223
